FAERS Safety Report 22362271 (Version 1)
Quarter: 2023Q2

REPORT INFORMATION
  Report Type: Spontaneous
  Country: CN (occurrence: CN)
  Receive Date: 20230524
  Receipt Date: 20230524
  Transmission Date: 20230722
  Serious: Yes (Hospitalization)
  Sender: FDA-Public Use
  Company Number: CN-PFIZER INC-PV202300090533

PATIENT
  Age: 89 Year
  Sex: Female
  Weight: 48 kg

DRUGS (2)
  1. NIRMATRELVIR\RITONAVIR [Suspect]
     Active Substance: NIRMATRELVIR\RITONAVIR
     Indication: COVID-19 treatment
     Dosage: 150 MG?NIRMATRELVIR/100 MG RITONAVIR, 2X/DAY
     Route: 048
     Dates: start: 20230505, end: 20230508
  2. CEFTAZIDIME [Concomitant]
     Active Substance: CEFTAZIDIME
     Indication: Pneumonia
     Dosage: 2 G, 2X/DAY
     Route: 041
     Dates: start: 20230505, end: 20230508

REACTIONS (8)
  - Dysphoria [Recovered/Resolved]
  - Speech disorder [Recovered/Resolved]
  - Mania [Recovered/Resolved]
  - Initial insomnia [Recovered/Resolved]
  - Logorrhoea [Recovered/Resolved]
  - Communication disorder [Recovered/Resolved]
  - Somnolence [Recovered/Resolved]
  - Listless [Recovered/Resolved]

NARRATIVE: CASE EVENT DATE: 20230507
